FAERS Safety Report 18210584 (Version 1)
Quarter: 2020Q3

REPORT INFORMATION
  Report Type: Spontaneous
  Country: CA (occurrence: CA)
  Receive Date: 20200829
  Receipt Date: 20200829
  Transmission Date: 20201103
  Serious: Yes (Hospitalization)
  Sender: FDA-Public Use
  Company Number: CA-TEVA-2020-CA-1819035

PATIENT
  Age: 73 Year
  Sex: Female

DRUGS (2)
  1. FLUOROURACIL INJECTION USP [Suspect]
     Active Substance: FLUOROURACIL
     Indication: OESOPHAGEAL CARCINOMA
     Route: 042
  2. CISPLATIN INJECTION [Suspect]
     Active Substance: CISPLATIN
     Indication: OESOPHAGEAL CARCINOMA

REACTIONS (4)
  - Hypophagia [Unknown]
  - Neutrophil count decreased [Unknown]
  - Diarrhoea [Unknown]
  - Pyrexia [Unknown]
